FAERS Safety Report 5223316-8 (Version None)
Quarter: 2007Q1

REPORT INFORMATION
  Report Type: 
  Country: None (occurrence: None)
  Receive Date: 20070125
  Receipt Date: 20070109
  Transmission Date: 20070707
  Serious: Yes (Death)
  Sender: FDA-Public Use
  Company Number: MEDI-0004089

PATIENT
  Age: 3 Month
  Sex: Male
  Weight: 2.677 kg

DRUGS (2)
  1. SYNAGIS [Suspect]
     Indication: ANTIVIRAL PROPHYLAXIS
     Dosage: 1 IN 30 D, INTRAMUSCULAR
     Route: 030
     Dates: start: 20060118, end: 20060118
  2. DIPHTHERIA, PERTUSSIS, TETANUS, POLIOMYELITIS (DIPHTHERIA, PERTUSSIS, [Suspect]
     Indication: PROPHYLAXIS
     Dates: start: 20050117, end: 20050117

REACTIONS (16)
  - ASTHENIA [None]
  - CARDIAC FAILURE [None]
  - CHOLESTASIS [None]
  - COLD SWEAT [None]
  - CULTURE POSITIVE [None]
  - CYANOSIS [None]
  - ENDOCARDITIS [None]
  - HEPATIC FIBROSIS [None]
  - HEPATIC STEATOSIS [None]
  - HYPERHIDROSIS [None]
  - MYOCARDITIS [None]
  - PALLOR [None]
  - RESPIRATORY ARREST [None]
  - SHOCK [None]
  - SKIN DISCOLOURATION [None]
  - STAPHYLOCOCCAL INFECTION [None]
